FAERS Safety Report 6108337-5 (Version None)
Quarter: 2009Q1

REPORT INFORMATION
  Report Type: 
  Country: None (occurrence: None)
  Receive Date: 20090309
  Receipt Date: 20090305
  Transmission Date: 20090719
  Serious: No
  Sender: FDA-Public Use
  Company Number: US-B.I. PHARMACEUTICALS,INC./RIDGEFIELD-2009-BP-01066BP

PATIENT
  Sex: Female

DRUGS (6)
  1. SPIRIVA [Suspect]
     Indication: BRONCHITIS CHRONIC
     Route: 048
  2. SPIRIVA [Suspect]
     Indication: ASTHMA
  3. NORVASC [Concomitant]
  4. PREDNISONE [Concomitant]
  5. LEXAPRO [Concomitant]
  6. HUMIRA [Concomitant]

REACTIONS (2)
  - DRY MOUTH [None]
  - INCORRECT ROUTE OF DRUG ADMINISTRATION [None]
